FAERS Safety Report 6010151-6 (Version None)
Quarter: 2008Q4

REPORT INFORMATION
  Report Type: 
  Country: None (occurrence: None)
  Receive Date: 20081217
  Receipt Date: 20081217
  Transmission Date: 20090506
  Serious: Yes (Other)
  Sender: FDA-Public Use
  Company Number: None

PATIENT
  Age: 49 Year
  Sex: Female
  Weight: 71.2147 kg

DRUGS (2)
  1. PHENYTOIN [Suspect]
     Indication: CONVULSION
     Dosage: 1 GRAM IV 1 X DOSE
     Route: 042
     Dates: start: 20081215
  2. SODIUM CHLORIDE 0.9% [Concomitant]

REACTIONS (3)
  - ABASIA [None]
  - DEPRESSED LEVEL OF CONSCIOUSNESS [None]
  - SOMNOLENCE [None]
